FAERS Safety Report 5131605-0 (Version None)
Quarter: 2006Q4

REPORT INFORMATION
  Report Type: 
  Country: None (occurrence: None)
  Receive Date: 20061020
  Receipt Date: 20061010
  Transmission Date: 20070319
  Serious: Yes (Hospitalization)
  Sender: FDA-Public Use
  Company Number: PHEH2006US12866

PATIENT
  Age: 15 Year

DRUGS (4)
  1. EXJADE [Suspect]
     Indication: BLOOD IRON INCREASED
     Dosage: 20 MG/KG, QD
     Route: 048
     Dates: end: 20060906
  2. EXJADE [Suspect]
     Dosage: UNK, UNK
     Route: 048
     Dates: start: 20060912, end: 20060914
  3. EXJADE [Suspect]
     Dosage: UNK, UNK
     Route: 048
     Dates: start: 20060925, end: 20060929
  4. ANTIBIOTICS [Concomitant]

REACTIONS (13)
  - ABDOMINAL PAIN [None]
  - BACK PAIN [None]
  - CHILLS [None]
  - CHOLELITHIASIS [None]
  - DIARRHOEA [None]
  - GALLBLADDER DISORDER [None]
  - HEADACHE [None]
  - HYPOTENSION [None]
  - PYREXIA [None]
  - SICKLE CELL ANAEMIA WITH CRISIS [None]
  - STAPHYLOCOCCAL INFECTION [None]
  - VOMITING [None]
  - WHITE BLOOD CELL COUNT INCREASED [None]
